FAERS Safety Report 16551090 (Version 5)
Quarter: 2021Q1

REPORT INFORMATION
  Report Type: Spontaneous
  Country: JP (occurrence: JP)
  Receive Date: 20190710
  Receipt Date: 20210208
  Transmission Date: 20210419
  Serious: Yes (Other)
  Sender: FDA-Public Use
  Company Number: JP-GLAXOSMITHKLINE-JP2019JPN108776

PATIENT
  Age: 73 Year
  Sex: Male
  Weight: 61 kg

DRUGS (7)
  1. LOXOMARIN [Concomitant]
     Active Substance: LOXOPROFEN
     Indication: BONE PAIN
     Dosage: 60 MG, PRN
     Route: 048
     Dates: end: 20181206
  2. LOXOMARIN [Concomitant]
     Active Substance: LOXOPROFEN
     Indication: MYALGIA
  3. AMLODIPINE BESILATE + IRBESARTAN [Concomitant]
     Indication: HYPERTENSION
     Dosage: 1 DF, QD
     Route: 048
     Dates: start: 2002
  4. VEMLIDY [Concomitant]
     Active Substance: TENOFOVIR ALAFENAMIDE FUMARATE
     Indication: HEPATITIS B
     Dosage: UNK
  5. ZEFIX [Suspect]
     Active Substance: LAMIVUDINE
     Indication: HEPATITIS B
     Dosage: 100 MG, QD
     Route: 048
     Dates: start: 2002, end: 20181101
  6. BARACLUDE TABLETS [Concomitant]
     Indication: HEPATITIS B
     Dosage: UNK
     Dates: start: 20181213
  7. HEPSERA [Suspect]
     Active Substance: ADEFOVIR DIPIVOXIL
     Indication: HEPATITIS B
     Dosage: 10 MG, QD
     Route: 048
     Dates: start: 201304, end: 20181101

REACTIONS (14)
  - Bone pain [Recovering/Resolving]
  - Blood phosphorus decreased [Recovering/Resolving]
  - Coccydynia [Unknown]
  - Fanconi syndrome acquired [Recovering/Resolving]
  - Hepatitis B reactivation [Unknown]
  - Hepatocellular carcinoma [Unknown]
  - Myalgia [Recovering/Resolving]
  - Insomnia [Not Recovered/Not Resolved]
  - Pain [Unknown]
  - Hypoaesthesia [Unknown]
  - Pain in extremity [Unknown]
  - Pelvic pain [Unknown]
  - Blood alkaline phosphatase increased [Recovering/Resolving]
  - Calcinosis [Unknown]

NARRATIVE: CASE EVENT DATE: 2012
